FAERS Safety Report 10965176 (Version 1)
Quarter: 2015Q1

REPORT INFORMATION
  Report Type: Spontaneous
  Country: US (occurrence: US)
  Receive Date: 20150330
  Receipt Date: 20150330
  Transmission Date: 20150721
  Serious: No
  Sender: FDA-Public Use
  Company Number: US-PFIZER INC-2015092832

PATIENT
  Age: 57 Year
  Sex: Male

DRUGS (2)
  1. ELIQUIS [Suspect]
     Active Substance: APIXABAN
     Dosage: 5 MG, UNK
  2. AMIODARONE HCL [Suspect]
     Active Substance: AMIODARONE HYDROCHLORIDE

REACTIONS (1)
  - Tremor [Unknown]
